FAERS Safety Report 7685705-1 (Version None)
Quarter: 2011Q3

REPORT INFORMATION
  Report Type: 
  Country: None (occurrence: None)
  Receive Date: 20110816
  Receipt Date: 20110811
  Transmission Date: 20111222
  Serious: Yes (Hospitalization, Other)
  Sender: FDA-Public Use
  Company Number: US-PFIZER INC-2011118635

PATIENT
  Sex: Male

DRUGS (1)
  1. CHANTIX [Suspect]
     Indication: SMOKING CESSATION THERAPY
     Dosage: UNK
     Dates: start: 20080401, end: 20080901

REACTIONS (8)
  - SUICIDE ATTEMPT [None]
  - AGGRESSION [None]
  - EMOTIONAL DISTRESS [None]
  - DEPRESSION [None]
  - ANXIETY [None]
  - IMPAIRED DRIVING ABILITY [None]
  - ABNORMAL BEHAVIOUR [None]
  - MENTAL DISORDER [None]
